FAERS Safety Report 19696435 (Version 2)
Quarter: 2021Q3

REPORT INFORMATION
  Report Type: Spontaneous
  Country: US (occurrence: US)
  Receive Date: 20210813
  Receipt Date: 20210930
  Transmission Date: 20211014
  Serious: Yes (Hospitalization)
  Sender: FDA-Public Use
  Company Number: US-SUN PHARMACEUTICAL INDUSTRIES LTD-2021R1-294712

PATIENT
  Age: 53 Year
  Sex: Male
  Weight: 70.75 kg

DRUGS (8)
  1. EPOPROSTENOL. [Suspect]
     Active Substance: EPOPROSTENOL
     Dosage: 13 NG/KG/MIN CONTINOUS
     Route: 042
     Dates: start: 20210419
  2. ELIQUIS [Concomitant]
     Active Substance: APIXABAN
     Indication: PRODUCT USED FOR UNKNOWN INDICATION
     Route: 065
  3. EPOPROSTENOL. [Suspect]
     Active Substance: EPOPROSTENOL
     Indication: PULMONARY ARTERIAL HYPERTENSION
     Dosage: 12 NG/KG/MIN CONTINOUS
     Route: 042
     Dates: start: 20210419
  4. OPSUMIT [Concomitant]
     Active Substance: MACITENTAN
     Indication: PRODUCT USED FOR UNKNOWN INDICATION
     Route: 065
  5. TYVASO [Concomitant]
     Active Substance: TREPROSTINIL
     Indication: PRODUCT USED FOR UNKNOWN INDICATION
     Route: 065
  6. SILDENAFIL CITRATE. [Concomitant]
     Active Substance: SILDENAFIL CITRATE
     Indication: PRODUCT USED FOR UNKNOWN INDICATION
     Dosage: UNK
     Route: 065
  7. EPOPROSTENOL. [Suspect]
     Active Substance: EPOPROSTENOL
     Dosage: 13 NG/KG/MIN CONTINOUS
     Route: 042
     Dates: start: 20210419
  8. EPOPROSTENOL. [Suspect]
     Active Substance: EPOPROSTENOL
     Dosage: 11 NG/KG/MIN CONTINOUS
     Route: 042
     Dates: start: 20210419

REACTIONS (18)
  - Diarrhoea [Recovering/Resolving]
  - Abdominal discomfort [Unknown]
  - Dyspnoea exertional [Not Recovered/Not Resolved]
  - Hyperhidrosis [Unknown]
  - Fluid retention [Unknown]
  - Dizziness [Unknown]
  - Oedema peripheral [Unknown]
  - Pain [Unknown]
  - Pruritus [Not Recovered/Not Resolved]
  - Chest discomfort [Unknown]
  - Fatigue [Unknown]
  - Pain in jaw [Not Recovered/Not Resolved]
  - Decreased appetite [Unknown]
  - Oedema [Unknown]
  - Flushing [Unknown]
  - Bloody discharge [Unknown]
  - Nausea [Not Recovered/Not Resolved]
  - Headache [Unknown]

NARRATIVE: CASE EVENT DATE: 20210423
